FAERS Safety Report 9317801 (Version 3)
Quarter: 2014Q1

REPORT INFORMATION
  Report Type: Spontaneous
  Country: JP (occurrence: JP)
  Receive Date: 20130530
  Receipt Date: 20140113
  Transmission Date: 20141002
  Serious: Yes (Death, Hospitalization)
  Sender: FDA-Public Use
  Company Number: PHHY2013JP054194

PATIENT
  Age: 68 Year
  Sex: Male

DRUGS (2)
  1. PREDNISOLONE [Suspect]
     Indication: NEPHROTIC SYNDROME
     Dosage: 60 MG, UNK
     Route: 048
     Dates: start: 201205
  2. CICLOSPORIN [Suspect]
     Indication: NEPHROTIC SYNDROME
     Dosage: 150 MG,
     Route: 048
     Dates: start: 201206

REACTIONS (13)
  - Hypoproteinaemia [Fatal]
  - Renal impairment [Fatal]
  - Kaposi^s sarcoma [Fatal]
  - Skin mass [Fatal]
  - Malaise [Fatal]
  - Decreased appetite [Fatal]
  - Rash [Fatal]
  - Pain [Fatal]
  - Erythema [Fatal]
  - Purpura [Fatal]
  - Neoplasm skin [Fatal]
  - Wound secretion [Fatal]
  - Infection [Fatal]
